FAERS Safety Report 4839622-2 (Version None)
Quarter: 2005Q4

REPORT INFORMATION
  Report Type: 
  Country: None (occurrence: None)
  Receive Date: 20051129
  Receipt Date: 20050411
  Transmission Date: 20060501
  Serious: No
  Sender: FDA-Public Use
  Company Number: US-GLAXOSMITHKLINE-A0553578A

PATIENT
  Sex: Male

DRUGS (3)
  1. WELLBUTRIN SR [Suspect]
     Indication: ATTENTION DEFICIT/HYPERACTIVITY DISORDER
     Dosage: 100MG PER DAY
     Route: 048
  2. ALCOHOL [Suspect]
  3. TRAZODONE [Concomitant]

REACTIONS (2)
  - HEADACHE [None]
  - NAUSEA [None]
